FAERS Safety Report 22270602 (Version 1)
Quarter: 2023Q2

REPORT INFORMATION
  Report Type: Spontaneous
  Country: US (occurrence: US)
  Receive Date: 20230501
  Receipt Date: 20230501
  Transmission Date: 20230722
  Serious: No
  Sender: FDA-Public Use
  Company Number: US-BIOMARINAP-US-2023-150054

PATIENT

DRUGS (1)
  1. VIMIZIM [Suspect]
     Active Substance: ELOSULFASE ALFA
     Indication: Mucopolysaccharidosis IV
     Dosage: 180 MILLIGRAM, QW
     Route: 042
     Dates: start: 201608

REACTIONS (4)
  - Upper respiratory tract infection [Unknown]
  - Tinnitus [Unknown]
  - Tachycardia [Unknown]
  - Weight increased [Unknown]

NARRATIVE: CASE EVENT DATE: 20230331
